FAERS Safety Report 22354432 (Version 1)
Quarter: 2023Q2

REPORT INFORMATION
  Report Type: Spontaneous
  Country: US (occurrence: None)
  Receive Date: 20230522
  Receipt Date: 20230522
  Transmission Date: 20230722
  Serious: No
  Sender: FDA-Public Use
  Company Number: None

PATIENT
  Age: 63 Year
  Sex: Female
  Weight: 123.75 kg

DRUGS (6)
  1. METFORMIN [Suspect]
     Active Substance: METFORMIN HYDROCHLORIDE
     Indication: Diabetes mellitus
     Dosage: OTHER QUANTITY : 1 TABLET(S);?
     Route: 048
  2. Losartan HCTZ 100/12.5mg [Concomitant]
  3. ASPIRIN [Concomitant]
     Active Substance: ASPIRIN
  4. Zyterec [Concomitant]
  5. MAGNESIUM [Concomitant]
  6. VITAMIN C [Concomitant]
     Active Substance: ASCORBIC ACID

REACTIONS (2)
  - Tremor [None]
  - Chest discomfort [None]

NARRATIVE: CASE EVENT DATE: 20230515
